FAERS Safety Report 9289562 (Version 6)
Quarter: 2014Q1

REPORT INFORMATION
  Report Type: Report from Study
  Country: DE (occurrence: DE)
  Receive Date: 20130515
  Receipt Date: 20140218
  Transmission Date: 20141002
  Serious: Yes (Hospitalization)
  Sender: FDA-Public Use
  Company Number: DE-ROCHE-1223824

PATIENT
  Age: 71 Year
  Sex: Male
  Weight: 104 kg

DRUGS (19)
  1. TOCILIZUMAB [Suspect]
     Indication: RHEUMATOID ARTHRITIS
     Route: 042
     Dates: start: 20121024, end: 20130226
  2. METHOTREXAT [Suspect]
     Indication: RHEUMATOID ARTHRITIS
     Route: 065
     Dates: start: 201008, end: 201304
  3. METHOTREXAT [Suspect]
     Route: 065
  4. CALCIUM D3 [Concomitant]
     Route: 065
  5. ALENDRONAT [Concomitant]
     Route: 065
  6. METAMIZOL [Concomitant]
     Route: 065
  7. PREDNISOLONE [Concomitant]
     Route: 065
  8. PREDNISOLONE [Concomitant]
     Route: 065
  9. ASS [Concomitant]
     Indication: CORONARY ARTERY DISEASE
     Route: 065
  10. TEMAZEPAM [Concomitant]
     Indication: DEPRESSION
  11. SIMVASTATINE [Concomitant]
     Indication: LIPID METABOLISM DISORDER
     Route: 065
  12. GLIMEPIRIDA [Concomitant]
     Indication: TYPE 2 DIABETES MELLITUS
     Route: 065
  13. METFORMIN [Concomitant]
     Indication: TYPE 2 DIABETES MELLITUS
     Route: 065
  14. BISOPROLOL [Concomitant]
     Indication: HYPERTENSION
  15. TORASEMIDE [Concomitant]
     Indication: CARDIAC FAILURE
  16. EUTHYROX [Concomitant]
     Indication: THYROID DISORDER
  17. ABATACEPT [Concomitant]
     Route: 065
     Dates: start: 20130425
  18. DELIX (GERMANY) [Concomitant]
     Route: 065
  19. MORPHINE [Concomitant]

REACTIONS (5)
  - Lobar pneumonia [Recovered/Resolved]
  - Hydrocholecystis [Recovered/Resolved]
  - Cholelithiasis [Recovered/Resolved]
  - Bronchitis [Recovering/Resolving]
  - Dyspnoea [Recovering/Resolving]
